FAERS Safety Report 10378051 (Version 1)
Quarter: 2014Q1

REPORT INFORMATION
  Report Type: Spontaneous
  Country: US (occurrence: None)
  Receive Date: 20140306
  Receipt Date: 20140306
  Transmission Date: 20141002
  Serious: Yes (Hospitalization)
  Sender: FDA-Public Use
  Company Number: 163-21880-13013504

PATIENT
  Age: 81 Year
  Sex: Female
  Weight: 63.5 kg

DRUGS (7)
  1. PRILLOSEC [Concomitant]
  2. VITAMIN B12 [Concomitant]
  3. VITAMIN D3 [Concomitant]
  4. REVLIMID (LENALIDOMIDE) (10 MILLIGRAM, CAPSULES) [Suspect]
     Indication: PLASMA CELL MYELOMA
     Route: 048
     Dates: start: 200912
  5. LASIX(FUROSEMIDE)TABLETS [Concomitant]
  6. MORPHINE SULPHATE [Concomitant]
  7. MUCINEX DM [Concomitant]

REACTIONS (3)
  - Pleural effusion [None]
  - Respiratory tract congestion [None]
  - Platelet count decreased [None]
